FAERS Safety Report 7081500-5 (Version None)
Quarter: 2010Q4

REPORT INFORMATION
  Report Type: 
  Country: None (occurrence: None)
  Receive Date: 20101103
  Receipt Date: 20101026
  Transmission Date: 20110411
  Serious: Yes (Other)
  Sender: FDA-Public Use
  Company Number: US-ALLERGAN-1013822US

PATIENT
  Age: 38 Year
  Sex: Female

DRUGS (1)
  1. BOTOX COSMETIC [Suspect]
     Indication: SKIN WRINKLING
     Dosage: UNK
     Route: 030
     Dates: start: 20100904, end: 20100904

REACTIONS (16)
  - DRUG INEFFECTIVE [None]
  - DYSTONIA [None]
  - FACIAL SPASM [None]
  - MUSCLE SPASMS [None]
  - MUSCULAR WEAKNESS [None]
  - MYALGIA [None]
  - NEURALGIA [None]
  - PHARYNGEAL HYPOAESTHESIA [None]
  - PHARYNGEAL OEDEMA [None]
  - RETCHING [None]
  - THROAT IRRITATION [None]
  - TONGUE SPASM [None]
  - TORTICOLLIS [None]
  - URTICARIA [None]
  - VOCAL CORD DISORDER [None]
  - WHIPLASH INJURY [None]
